FAERS Safety Report 12555944 (Version 1)
Quarter: 2016Q3

REPORT INFORMATION
  Report Type: Spontaneous
  Country: US (occurrence: None)
  Receive Date: 20160713
  Receipt Date: 20160713
  Transmission Date: 20161109
  Serious: Yes (Hospitalization)
  Sender: FDA-Public Use
  Company Number: None

PATIENT
  Age: 45 Year
  Sex: Female

DRUGS (16)
  1. PSYLLIUM [Concomitant]
     Active Substance: PLANTAGO SEED
  2. FLONASE [Concomitant]
     Active Substance: FLUTICASONE PROPIONATE
  3. IBUPROFEN. [Concomitant]
     Active Substance: IBUPROFEN
  4. VITAMIN D [Concomitant]
     Active Substance: CHOLECALCIFEROL
  5. LETROZOLE. [Concomitant]
     Active Substance: LETROZOLE
  6. ALBUTEROL. [Concomitant]
     Active Substance: ALBUTEROL
  7. AMLOD/BENAZP [Concomitant]
  8. OXYCODONE [Concomitant]
     Active Substance: OXYCODONE
  9. ADVAIR DISKU [Concomitant]
  10. IBRANCE [Suspect]
     Active Substance: PALBOCICLIB
     Indication: BREAST CANCER
     Dosage: 125MG 21 DAYS ON 7 OFF  QD PO
     Route: 048
     Dates: start: 20160426
  11. VENLAFAXINE [Concomitant]
     Active Substance: VENLAFAXINE HYDROCHLORIDE
  12. STOOL SOFTNER [Concomitant]
     Active Substance: DOCUSATE SODIUM
  13. CALCIUM [Concomitant]
     Active Substance: CALCIUM
  14. HYDROCHLOROT [Concomitant]
     Active Substance: HYDROCHLOROTHIAZIDE
  15. PANTOPRAZOLE [Concomitant]
     Active Substance: PANTOPRAZOLE SODIUM
  16. GABAPENTIN. [Concomitant]
     Active Substance: GABAPENTIN

REACTIONS (1)
  - Hysterectomy [None]

NARRATIVE: CASE EVENT DATE: 20160711
